FAERS Safety Report 10188266 (Version 2)
Quarter: 2014Q2

REPORT INFORMATION
  Report Type: Spontaneous
  Country: FR (occurrence: FR)
  Receive Date: 20140522
  Receipt Date: 20140522
  Transmission Date: 20141212
  Serious: Yes (Hospitalization, Other)
  Sender: FDA-Public Use
  Company Number: FR-SHIRE-ALL1-2014-01295

PATIENT
  Age: 78 Year
  Sex: Male

DRUGS (2)
  1. XAGRID [Suspect]
     Indication: ESSENTIAL THROMBOCYTHAEMIA
     Dosage: 1.5MG (3-0.5MG TABLETS DAILY, UNKNOWN FREQUENCY)
     Route: 048
     Dates: start: 20130527, end: 20131206
  2. HYDREA [Concomitant]
     Indication: ESSENTIAL THROMBOCYTHAEMIA
     Dosage: UNK, UNKNOWN
     Route: 065
     Dates: start: 200801

REACTIONS (3)
  - Acute coronary syndrome [Unknown]
  - Cardiac failure [Unknown]
  - Congestive cardiomyopathy [Recovering/Resolving]
